FAERS Safety Report 7240875-4 (Version None)
Quarter: 2011Q1

REPORT INFORMATION
  Report Type: 
  Country: None (occurrence: None)
  Receive Date: 20110120
  Receipt Date: 20110120
  Transmission Date: 20110831
  Serious: Yes (Disabling, Other)
  Sender: FDA-Public Use
  Company Number: None

PATIENT
  Age: 46 Year
  Sex: Male
  Weight: 95.2554 kg

DRUGS (1)
  1. BACTRIM [Suspect]
     Indication: SINUSITIS
     Dosage: 800/ 160 1 TABLET TWICE A DAY MOUTH
     Route: 048
     Dates: start: 20101219, end: 20101222

REACTIONS (5)
  - BLISTER [None]
  - SKIN EXFOLIATION [None]
  - ERYTHEMA [None]
  - SKIN SWELLING [None]
  - PENIS DISORDER [None]
